FAERS Safety Report 6181473-3 (Version None)
Quarter: 2009Q2

REPORT INFORMATION
  Report Type: 
  Country: None (occurrence: None)
  Receive Date: 20090501
  Receipt Date: 20090415
  Transmission Date: 20091009
  Serious: Yes (Other)
  Sender: FDA-Public Use
  Company Number: PAR_02957_2009

PATIENT
  Sex: Male

DRUGS (10)
  1. IBUPROFEN [Suspect]
     Indication: DRUG USE FOR UNKNOWN INDICATION
     Dosage: (DF ORAL) (1800 MG ORAL)
     Route: 048
     Dates: start: 20090204, end: 20090204
  2. IBUPROFEN [Suspect]
     Indication: DRUG USE FOR UNKNOWN INDICATION
     Dosage: (DF ORAL) (1800 MG ORAL)
     Route: 048
     Dates: start: 20090205
  3. RIVAROXABAN [Suspect]
     Indication: THROMBOSIS PROPHYLAXIS
     Dosage: (10 MG ORAL)
     Route: 048
     Dates: start: 20090204
  4. CEFAZOLIN SODIUM [Concomitant]
  5. DIPIDOLOR [Concomitant]
  6. TUTOFUSIN [Concomitant]
  7. OMEPRAZOLE [Concomitant]
  8. TORSEMIDE [Concomitant]
  9. NOVALGIN /00039501/ [Concomitant]
  10. VALERON [Concomitant]

REACTIONS (4)
  - HAEMATOMA [None]
  - HAEMOGLOBIN DECREASED [None]
  - OSTEOARTHRITIS [None]
  - PAIN IN EXTREMITY [None]
